FAERS Safety Report 9601859 (Version 1)
Quarter: 2013Q4

REPORT INFORMATION
  Report Type: Spontaneous
  Country: IT (occurrence: None)
  Receive Date: 20131002
  Receipt Date: 20131002
  Transmission Date: 20140711
  Serious: Yes (Other)
  Sender: FDA-Public Use
  Company Number: SYM-2013-11141

PATIENT
  Sex: 0

DRUGS (3)
  1. FLUOROURACIL [Suspect]
     Indication: GASTRIC CANCER
     Route: 040
  2. IRINOTECAN (IRINOTECAN) (IRINOTECAN) [Suspect]
     Indication: GASTRIC CANCER
  3. LEUCOVORIN (FOLINIC ACID) [Suspect]
     Indication: GASTRIC CANCER
     Dosage: (NOT OTHERWISE SPECIFIED)
     Route: 042

REACTIONS (1)
  - Diarrhoea [None]
